FAERS Safety Report 9416440 (Version 2)
Quarter: 2013Q4

REPORT INFORMATION
  Report Type: Report from Study
  Country: CA (occurrence: CA)
  Receive Date: 20130724
  Receipt Date: 20131011
  Transmission Date: 20140711
  Serious: Yes (Other)
  Sender: FDA-Public Use
  Company Number: CA-BAYER-2013-079991

PATIENT
  Age: 78 Year
  Sex: Male

DRUGS (2)
  1. STIVARGA [Suspect]
     Indication: COLORECTAL CANCER
     Dosage: 160 MG, QD
     Route: 048
     Dates: start: 20130624, end: 20130711
  2. STIVARGA [Suspect]
     Indication: COLORECTAL CANCER METASTATIC
     Dosage: 120 MG, QD
     Route: 048
     Dates: start: 20130624

REACTIONS (11)
  - Hypertension [None]
  - Blood pressure systolic increased [None]
  - Asthenia [None]
  - Confusional state [None]
  - Fatigue [None]
  - Decreased appetite [None]
  - Diarrhoea [None]
  - Dysphonia [None]
  - Myalgia [None]
  - Dry skin [Not Recovered/Not Resolved]
  - Skin exfoliation [Not Recovered/Not Resolved]
